FAERS Safety Report 12196635 (Version 1)
Quarter: 2016Q1

REPORT INFORMATION
  Report Type: Spontaneous
  Country: US (occurrence: US)
  Receive Date: 20160321
  Receipt Date: 20160321
  Transmission Date: 20160526
  Serious: No
  Sender: FDA-Public Use
  Company Number: US-REGENERON PHARMACEUTICALS, INC.-2016-12955

PATIENT

DRUGS (6)
  1. ARCALYST [Suspect]
     Active Substance: RILONACEPT
     Indication: JUVENILE IDIOPATHIC ARTHRITIS
     Dosage: 2 ML MILLILITRE(S), WEEKLY
     Route: 058
     Dates: start: 201512
  2. CELEXA [Concomitant]
     Active Substance: CITALOPRAM HYDROBROMIDE
     Dosage: 40 MG MILLIGRAM(S), QD
  3. ARCALYST [Suspect]
     Active Substance: RILONACEPT
     Dosage: 2 ML MILLILITRE(S), WEEKLY
     Route: 058
     Dates: start: 20160224, end: 20160224
  4. OMEPRAZOLE. [Concomitant]
     Active Substance: OMEPRAZOLE
     Dosage: 20 MG MILLIGRAM(S), UNK
  5. SEROQUEL [Concomitant]
     Active Substance: QUETIAPINE FUMARATE
     Dosage: 100 MG MILLIGRAM(S), QD
  6. KLONOPIN [Concomitant]
     Active Substance: CLONAZEPAM
     Dosage: 1 MG MILLIGRAM(S), AS NECESSARY

REACTIONS (4)
  - Injection site swelling [Not Recovered/Not Resolved]
  - Off label use [Not Recovered/Not Resolved]
  - Injection site pain [Not Recovered/Not Resolved]
  - Injection site bruising [Not Recovered/Not Resolved]

NARRATIVE: CASE EVENT DATE: 201512
